FAERS Safety Report 9186631 (Version 2)
Quarter: 2013Q1

REPORT INFORMATION
  Report Type: Report from Study
  Country: KR (occurrence: KR)
  Receive Date: 20130325
  Receipt Date: 20130327
  Transmission Date: 20140127
  Serious: Yes (Death, Hospitalization, Other)
  Sender: FDA-Public Use
  Company Number: PHHY2013KR028672

PATIENT
  Age: 80 Year
  Sex: Male
  Weight: 54 kg

DRUGS (1)
  1. AMN107 [Suspect]
     Indication: CHRONIC MYELOID LEUKAEMIA
     Dosage: 800 MG, PER DAY
     Route: 048
     Dates: start: 20121016, end: 20121217

REACTIONS (12)
  - Renal failure acute [Fatal]
  - Abdominal pain [Not Recovered/Not Resolved]
  - Haematochezia [Not Recovered/Not Resolved]
  - Aspartate aminotransferase increased [Unknown]
  - Alanine aminotransferase increased [Unknown]
  - Blood creatine phosphokinase increased [Unknown]
  - C-reactive protein increased [Unknown]
  - Blood creatine phosphokinase MB increased [Unknown]
  - Aortic arteriosclerosis [Unknown]
  - Aortic thrombosis [Unknown]
  - Coeliac artery stenosis [Unknown]
  - Ascites [Unknown]
